FAERS Safety Report 21808968 (Version 1)
Quarter: 2023Q1

REPORT INFORMATION
  Report Type: Spontaneous
  Country: US (occurrence: US)
  Receive Date: 20230103
  Receipt Date: 20230103
  Transmission Date: 20230417
  Serious: Yes (Hospitalization, Other)
  Sender: FDA-Public Use
  Company Number: None

PATIENT
  Sex: Male

DRUGS (2)
  1. BUPROPION HYDROCHLORIDE [Suspect]
     Active Substance: BUPROPION HYDROCHLORIDE
     Indication: Euphoric mood
     Dosage: HE OBTAINED SAME DOSAGE FOR THE PAST 6 TO 7 YEARS.
     Route: 065
  2. BUPROPION HYDROCHLORIDE [Suspect]
     Active Substance: BUPROPION HYDROCHLORIDE
     Dosage: HE OBTAINED SAME DOSAGE FOR THE PAST 6 TO 7 YEARS.
     Route: 065

REACTIONS (5)
  - Drug abuse [Unknown]
  - Hyponatraemia [Recovered/Resolved]
  - Suicide attempt [Recovered/Resolved]
  - Hallucinations, mixed [Recovered/Resolved]
  - Product use issue [Unknown]
